FAERS Safety Report 5968872-7 (Version None)
Quarter: 2008Q4

REPORT INFORMATION
  Report Type: 
  Country: None (occurrence: None)
  Receive Date: 20081125
  Receipt Date: 20081125
  Transmission Date: 20090506
  Serious: Yes (Other)
  Sender: FDA-Public Use
  Company Number: None

PATIENT
  Age: 80 Year
  Sex: Male
  Weight: 70.3075 kg

DRUGS (3)
  1. PAROXETINE HCL [Suspect]
     Indication: ANXIETY
     Dosage: 1 TABLET PER DAY PO
     Route: 048
     Dates: start: 20080219, end: 20081124
  2. PAROXETINE HCL [Suspect]
     Indication: DEPRESSION
     Dosage: 1 TABLET PER DAY PO
     Route: 048
     Dates: start: 20080219, end: 20081124
  3. PAROXETINE HCL [Concomitant]

REACTIONS (4)
  - PRURITUS [None]
  - PURPURA [None]
  - RASH [None]
  - URTICARIA [None]
